FAERS Safety Report 7784626-3 (Version None)
Quarter: 2011Q3

REPORT INFORMATION
  Report Type: 
  Country: None (occurrence: None)
  Receive Date: 20110928
  Receipt Date: 20110919
  Transmission Date: 20111222
  Serious: Yes (Hospitalization)
  Sender: FDA-Public Use
  Company Number: US-SANOFI-AVENTIS-2011SA061641

PATIENT
  Age: 61 Year
  Sex: Female
  Weight: 89.81 kg

DRUGS (5)
  1. GLIMEPIRIDE [Suspect]
     Route: 065
  2. METFORMIN HCL [Suspect]
     Route: 065
  3. STARLIX [Suspect]
     Route: 065
  4. ACTOS [Suspect]
     Route: 065
     Dates: end: 20110301
  5. JANUVIA [Suspect]
     Route: 065

REACTIONS (3)
  - RENAL INJURY [None]
  - BLOOD GLUCOSE INCREASED [None]
  - OEDEMA PERIPHERAL [None]
